FAERS Safety Report 6388583-6 (Version None)
Quarter: 2009Q4

REPORT INFORMATION
  Report Type: 
  Country: None (occurrence: None)
  Receive Date: 20091005
  Receipt Date: 20090925
  Transmission Date: 20100525
  Serious: Yes (Other)
  Sender: FDA-Public Use
  Company Number: US-JNJFOC-20090908187

PATIENT
  Sex: Female

DRUGS (1)
  1. NATRECOR [Suspect]
     Indication: CARDIAC FAILURE CONGESTIVE
     Route: 042
     Dates: start: 20090925, end: 20090925

REACTIONS (1)
  - MEDICATION ERROR [None]
